FAERS Safety Report 7470660-X (Version None)
Quarter: 2011Q2

REPORT INFORMATION
  Report Type: 
  Country: None (occurrence: None)
  Receive Date: 20110510
  Receipt Date: 20110509
  Transmission Date: 20111010
  Serious: Yes (Hospitalization)
  Sender: FDA-Public Use
  Company Number: US-TEVA-280676USA

PATIENT
  Sex: Female

DRUGS (1)
  1. DROSPERINONE/ETHINYL ESTRADIOL [Suspect]
     Dosage: 3:0.02MG:MG

REACTIONS (11)
  - NAUSEA [None]
  - DYSPEPSIA [None]
  - ABDOMINAL DISTENSION [None]
  - DIZZINESS [None]
  - GASTROOESOPHAGEAL REFLUX DISEASE [None]
  - ABDOMINAL PAIN [None]
  - SENSATION OF PRESSURE [None]
  - SPEECH DISORDER [None]
  - NECK PAIN [None]
  - GAIT DISTURBANCE [None]
  - DYSSTASIA [None]
